FAERS Safety Report 24825359 (Version 2)
Quarter: 2025Q1

REPORT INFORMATION
  Report Type: Spontaneous
  Country: US (occurrence: US)
  Receive Date: 20250109
  Receipt Date: 20250122
  Transmission Date: 20250409
  Serious: Yes (Hospitalization, Other)
  Sender: BIOCODEX
  Company Number: US-BIOCODEX2-2024001990

PATIENT
  Sex: Male
  Weight: 31.8 kg

DRUGS (1)
  1. DIACOMIT [Suspect]
     Active Substance: STIRIPENTOL
     Indication: Lennox-Gastaut syndrome
     Dosage: 500 MG VIA G-TUBE THREE TIMES ?DAILY
     Route: 050

REACTIONS (4)
  - Seizure [Recovered/Resolved]
  - Viral infection [Unknown]
  - Off label use [Unknown]
  - Off label use [Unknown]
